FAERS Safety Report 8102579 (Version 5)
Quarter: 2013Q4

REPORT INFORMATION
  Report Type: Spontaneous
  Country: US (occurrence: US)
  Receive Date: 20110823
  Receipt Date: 20131203
  Transmission Date: 20140711
  Serious: Yes (Hospitalization)
  Sender: FDA-Public Use
  Company Number: US-GLAXOSMITHKLINE-A0915664A

PATIENT
  Age: 85 Year
  Sex: Female
  Weight: 78.9 kg

DRUGS (1)
  1. AVANDIA [Suspect]
     Indication: DIABETES MELLITUS
     Route: 048
     Dates: start: 200412, end: 201006

REACTIONS (2)
  - Arrhythmia [Unknown]
  - Cardiac failure congestive [Unknown]
